FAERS Safety Report 14234560 (Version 1)
Quarter: 2017Q4

REPORT INFORMATION
  Report Type: Spontaneous
  Country: US (occurrence: US)
  Receive Date: 20171129
  Receipt Date: 20171129
  Transmission Date: 20180321
  Serious: No
  Sender: FDA-Public Use
  Company Number: US-JNJFOC-20171012181

PATIENT
  Sex: Female

DRUGS (4)
  1. RISPERDAL [Concomitant]
     Active Substance: RISPERIDONE
     Indication: PRODUCT USED FOR UNKNOWN INDICATION
     Route: 065
  2. LITHIUM. [Concomitant]
     Active Substance: LITHIUM
     Indication: PRODUCT USED FOR UNKNOWN INDICATION
     Route: 065
  3. TYLENOL 8HR [Suspect]
     Active Substance: ACETAMINOPHEN
     Indication: RESTLESS LEGS SYNDROME
     Dosage: ONE TABLET AT BEDTIME AND SOMETIMES 2 TABLETS
     Route: 048
  4. TYLENOL 8HR [Suspect]
     Active Substance: ACETAMINOPHEN
     Indication: RESTLESS LEGS SYNDROME
     Dosage: ONE OR TWO AT A TIME, AS NEEDED
     Route: 048

REACTIONS (2)
  - Product use in unapproved indication [Unknown]
  - Therapeutic response unexpected [Unknown]
